FAERS Safety Report 5756591-1 (Version None)
Quarter: 2008Q2

REPORT INFORMATION
  Report Type: 
  Country: None (occurrence: None)
  Receive Date: 20080528
  Receipt Date: 20080515
  Transmission Date: 20081010
  Serious: No
  Sender: FDA-Public Use
  Company Number: LUP-0285

PATIENT
  Age: 6 Year
  Sex: Male
  Weight: 22.6799 kg

DRUGS (1)
  1. CEFDINIR [Suspect]
     Indication: OTITIS MEDIA
     Dosage: 125MG/5ML, ORAL
     Route: 048
     Dates: start: 20080424, end: 20080502

REACTIONS (6)
  - ERYTHEMA [None]
  - HYPERSENSITIVITY [None]
  - OEDEMA PERIPHERAL [None]
  - RASH [None]
  - SWELLING [None]
  - URTICARIA [None]
